FAERS Safety Report 4333403-4 (Version None)
Quarter: 2004Q1

REPORT INFORMATION
  Report Type: 
  Country: None (occurrence: None)
  Receive Date: 20040329
  Receipt Date: 20040225
  Transmission Date: 20041129
  Serious: No
  Sender: FDA-Public Use
  Company Number: 04P-163-0251471-00

PATIENT
  Age: 61 Year
  Sex: Female
  Weight: 77.1115 kg

DRUGS (9)
  1. HUMIRA [Suspect]
     Indication: RHEUMATOID ARTHRITIS
     Dosage: 1 IN 2 WK, SUBCUTANEOUS
     Route: 058
     Dates: start: 20031101
  2. DIFLUNISAL [Concomitant]
  3. GABAPENTIN [Concomitant]
  4. ESOMEPRAZOLE [Concomitant]
  5. FLUTICASONE PROPIONATE [Concomitant]
  6. CETIRIZINE HCL [Concomitant]
  7. FOLIC ACID [Concomitant]
  8. CYANOCOBALAMIN [Concomitant]
  9. CALCIUM [Concomitant]

REACTIONS (3)
  - FEELING ABNORMAL [None]
  - MUSCULOSKELETAL STIFFNESS [None]
  - NASOPHARYNGITIS [None]
